FAERS Safety Report 5834020-7 (Version None)
Quarter: 2008Q3

REPORT INFORMATION
  Report Type: 
  Country: None (occurrence: None)
  Receive Date: 20080805
  Receipt Date: 20080728
  Transmission Date: 20090109
  Serious: Yes (Death, Hospitalization)
  Sender: FDA-Public Use
  Company Number: ES-MERCK-0801ESP00002

PATIENT
  Age: 90 Year
  Sex: Female

DRUGS (2)
  1. INVANZ [Suspect]
     Indication: URINARY TRACT INFECTION
     Route: 042
     Dates: start: 20071201, end: 20071201
  2. INVANZ [Suspect]
     Indication: INFECTED SKIN ULCER
     Route: 042
     Dates: start: 20071201, end: 20071201

REACTIONS (4)
  - ATRIAL FIBRILLATION [None]
  - COMA [None]
  - CONFUSIONAL STATE [None]
  - OFF LABEL USE [None]
